FAERS Safety Report 4375098-X (Version None)
Quarter: 2004Q2

REPORT INFORMATION
  Report Type: 
  Country: None (occurrence: None)
  Receive Date: 20040604
  Receipt Date: 20040527
  Transmission Date: 20050107
  Serious: Yes (Life-Threatening)
  Sender: FDA-Public Use
  Company Number: 2004IC000160

PATIENT
  Age: 50 Year
  Sex: Female

DRUGS (3)
  1. FLUOROURACIL [Suspect]
     Indication: COLON CANCER
     Dosage: 4 GM; DAILY; INTRAVENOUS
     Route: 042
     Dates: start: 20040330, end: 20040401
  2. FLUOROURACIL [Suspect]
     Indication: COLON CANCER
     Dosage: INTRAVENOUS
     Route: 042
  3. ELOXANTINE [Concomitant]

REACTIONS (3)
  - CHEST PAIN [None]
  - ELECTROCARDIOGRAM ABNORMAL [None]
  - HYPERTENSION [None]
